FAERS Safety Report 5891880-1 (Version None)
Quarter: 2008Q3

REPORT INFORMATION
  Report Type: 
  Country: None (occurrence: None)
  Receive Date: 20080922
  Receipt Date: 20080911
  Transmission Date: 20090109
  Serious: Yes (Other)
  Sender: FDA-Public Use
  Company Number: US-ELI_LILLY_AND_COMPANY-US200809003401

PATIENT
  Age: 31 Year
  Sex: Female

DRUGS (3)
  1. CYMBALTA [Suspect]
     Dosage: 30 MG, UNK
  2. TOPAMAX [Concomitant]
     Dosage: 50 MG, DAILY (1/D)
  3. KLONOPIN [Concomitant]
     Dosage: 0.5 MG, 3/D

REACTIONS (4)
  - ASTHENIA [None]
  - DIZZINESS [None]
  - LOSS OF CONSCIOUSNESS [None]
  - ROAD TRAFFIC ACCIDENT [None]
